FAERS Safety Report 4819329-8 (Version None)
Quarter: 2005Q4

REPORT INFORMATION
  Report Type: 
  Country: None (occurrence: None)
  Receive Date: 20051031
  Receipt Date: 20050809
  Transmission Date: 20060501
  Serious: No
  Sender: FDA-Public Use
  Company Number: 2005PV000959

PATIENT
  Sex: Female

DRUGS (4)
  1. SYMLIN [Suspect]
     Indication: DIABETES MELLITUS INSULIN-DEPENDENT
     Dosage: 30 MCG; SC
     Route: 058
     Dates: start: 20050601
  2. NOVALOG [Concomitant]
  3. NAPROXIN [Concomitant]
  4. SKELAXIN [Concomitant]

REACTIONS (1)
  - METRORRHAGIA [None]
